FAERS Safety Report 9268198 (Version 1)
Quarter: 2013Q2

REPORT INFORMATION
  Report Type: Spontaneous
  Country: US (occurrence: US)
  Receive Date: 20130502
  Receipt Date: 20130502
  Transmission Date: 20140414
  Serious: No
  Sender: FDA-Public Use
  Company Number: US-ALEXION-A201201811

PATIENT
  Sex: Male
  Weight: 68.03 kg

DRUGS (4)
  1. SOLIRIS 300MG [Suspect]
     Indication: HAEMOLYTIC URAEMIC SYNDROME
     Dosage: UNK
     Route: 042
  2. LORTAB [Suspect]
  3. STEROIDS [Concomitant]
  4. ATENOLOL [Concomitant]
     Dosage: UNK

REACTIONS (5)
  - Weight increased [Recovering/Resolving]
  - Nightmare [Recovered/Resolved]
  - Hypertension [Recovering/Resolving]
  - Infusion site pain [Unknown]
  - Haemoglobin decreased [Unknown]
